FAERS Safety Report 7778175-6 (Version None)
Quarter: 2011Q3

REPORT INFORMATION
  Report Type: 
  Country: None (occurrence: None)
  Receive Date: 20110926
  Receipt Date: 20110915
  Transmission Date: 20111222
  Serious: Yes (Death, Life-Threatening, Other)
  Sender: FDA-Public Use
  Company Number: JP-GENZYME-THYM-1002747

PATIENT
  Sex: Female
  Weight: 47 kg

DRUGS (32)
  1. DORIPENEM HYDRATE [Concomitant]
     Indication: ANTIFUNGAL PROPHYLAXIS
     Dosage: UNK
     Route: 065
     Dates: start: 20100531, end: 20100617
  2. NAPROXEN [Concomitant]
     Indication: ANTIINFLAMMATORY THERAPY
     Dosage: UNK
     Route: 065
     Dates: start: 20100808, end: 20100813
  3. VANCOMYCIN HYCHLORIDE [Concomitant]
     Dosage: UNK
     Route: 065
     Dates: start: 20100721, end: 20100809
  4. PREDNISOLONE [Concomitant]
     Indication: PROPHYLAXIS AGAINST GRAFT VERSUS HOST DISEASE
     Dosage: UNK
     Route: 065
     Dates: start: 20100528, end: 20100909
  5. ITRACONAZOLE [Concomitant]
     Indication: ANTIFUNGAL PROPHYLAXIS
     Dosage: UNK
     Route: 065
     Dates: start: 20100618, end: 20100703
  6. MEROPENEM [Concomitant]
     Indication: INFECTION PROPHYLAXIS
     Dosage: UNK
     Route: 065
     Dates: start: 20100712, end: 20100728
  7. THYMOGLOBULIN [Suspect]
     Dosage: 50 MG, UNK
     Route: 042
     Dates: start: 20100530, end: 20100601
  8. VANCOMYCIN HYCHLORIDE [Concomitant]
     Indication: INFECTION PROPHYLAXIS
     Dosage: UNK
     Route: 065
     Dates: start: 20090926, end: 20091007
  9. ACYCLOVIR [Concomitant]
     Indication: INFECTION PROPHYLAXIS
     Dosage: UNK
     Route: 065
     Dates: start: 20100530, end: 20100707
  10. GABEXATE MESILATE [Concomitant]
     Indication: PROPHYLAXIS
     Dosage: UNK
     Route: 065
     Dates: start: 20100530, end: 20100706
  11. NAPROXEN [Concomitant]
     Indication: ANALGESIC THERAPY
  12. FLUDARA [Suspect]
     Indication: BONE MARROW CONDITIONING REGIMEN
     Dosage: 45 MG, QD
     Route: 065
     Dates: start: 20090915, end: 20090920
  13. CYCLOSPORINE [Concomitant]
     Indication: PROPHYLAXIS AGAINST GRAFT VERSUS HOST DISEASE
     Dosage: UNK
     Route: 065
     Dates: start: 20100602, end: 20100909
  14. MYCOPHENOLATE MOFETIL [Concomitant]
     Indication: PROPHYLAXIS AGAINST GRAFT VERSUS HOST DISEASE
     Dosage: UNK
     Route: 065
     Dates: start: 20100612, end: 20100627
  15. GANCICLOVIR [Concomitant]
     Indication: INFECTION PROPHYLAXIS
     Dosage: UNK
     Route: 065
     Dates: start: 20100530, end: 20100530
  16. AMPHOTERICIN B [Concomitant]
     Indication: ANTIFUNGAL PROPHYLAXIS
     Dosage: UNK
     Route: 065
     Dates: start: 20100530, end: 20100706
  17. THYMOGLOBULIN [Suspect]
     Indication: ACUTE GRAFT VERSUS HOST DISEASE
     Dosage: 50 MG, UNK
     Route: 042
     Dates: start: 20100527
  18. CYTARABINE [Concomitant]
     Indication: BONE MARROW CONDITIONING REGIMEN
     Dosage: UNK
     Route: 065
     Dates: start: 20090909, end: 20090912
  19. MELPHALAN HYDROCHLORIDE [Concomitant]
     Indication: BONE MARROW CONDITIONING REGIMEN
     Dosage: UNK
     Route: 065
     Dates: start: 20090920, end: 20090921
  20. CYTARABINE [Concomitant]
     Indication: ACUTE MYELOID LEUKAEMIA
     Dosage: UNK
     Route: 065
     Dates: start: 20090915, end: 20090918
  21. CEFEPIME HYDROCHLORIDE [Concomitant]
     Indication: INFECTION PROPHYLAXIS
     Dosage: UNK
     Route: 065
     Dates: start: 20090917, end: 20090930
  22. DORIPENEM HYDRATE [Concomitant]
     Indication: INFECTION PROPHYLAXIS
     Dosage: UNK
     Route: 065
     Dates: start: 20090926, end: 20091005
  23. BUSULFAN [Concomitant]
     Indication: ACUTE MYELOID LEUKAEMIA
     Dosage: UNK
     Route: 065
     Dates: start: 20100530, end: 20100530
  24. VORICONAZOLE [Concomitant]
     Indication: ANTIFUNGAL PROPHYLAXIS
     Dosage: UNK
     Route: 065
     Dates: start: 20100603, end: 20100617
  25. PIPERACILLIN W [Concomitant]
     Indication: INFECTION PROPHYLAXIS
     Dosage: UNK
     Route: 065
     Dates: start: 20100729, end: 20100809
  26. THYMOGLOBULIN [Suspect]
     Indication: BONE MARROW CONDITIONING REGIMEN
     Dosage: 50 MG, QD
     Route: 042
     Dates: start: 20090921, end: 20090923
  27. FLUDARA [Suspect]
     Indication: ACUTE MYELOID LEUKAEMIA
     Dosage: UNK MG, QD
     Route: 065
     Dates: start: 20100525, end: 20100527
  28. METHYLPREDNISOLONE [Concomitant]
     Indication: PROPHYLAXIS AGAINST GRAFT VERSUS HOST DISEASE
     Dosage: UNK
     Route: 065
     Dates: start: 20090909, end: 20091024
  29. TACROLIMUS [Concomitant]
     Indication: PROPHYLAXIS AGAINST GRAFT VERSUS HOST DISEASE
     Dosage: UNK
     Route: 065
     Dates: start: 20090921, end: 20091024
  30. LINEZOLID [Concomitant]
     Indication: INFECTION PROPHYLAXIS
     Dosage: UNK
     Route: 065
     Dates: start: 20100530, end: 20100614
  31. MEROPENEM [Concomitant]
     Dosage: UNK
     Route: 065
     Dates: start: 20100809, end: 20100816
  32. CYTARABINE OCFOSFATE [Concomitant]
     Indication: ACUTE MYELOID LEUKAEMIA
     Dosage: UNK
     Route: 065
     Dates: start: 20100818, end: 20100909

REACTIONS (3)
  - ACUTE MYELOID LEUKAEMIA RECURRENT [None]
  - PSEUDOMONAL SEPSIS [None]
  - ACUTE GRAFT VERSUS HOST DISEASE IN SKIN [None]
